FAERS Safety Report 11044025 (Version 1)
Quarter: 2015Q2

REPORT INFORMATION
  Report Type: Spontaneous
  Country: CA (occurrence: CA)
  Receive Date: 20150417
  Receipt Date: 20150417
  Transmission Date: 20150821
  Serious: Yes (Death)
  Sender: FDA-Public Use
  Company Number: CA-TEVA-555197ACC

PATIENT
  Age: 58 Year
  Sex: Female

DRUGS (1)
  1. OLANZAPINE. [Suspect]
     Active Substance: OLANZAPINE
     Indication: BIPOLAR DISORDER
     Dosage: UNKNOWN FORM STRENGTH
     Route: 065

REACTIONS (2)
  - Antipsychotic drug level increased [Fatal]
  - Pulmonary embolism [Fatal]
